FAERS Safety Report 24291442 (Version 1)
Quarter: 2024Q3

REPORT INFORMATION
  Report Type: Spontaneous
  Country: US (occurrence: None)
  Receive Date: 20240906
  Receipt Date: 20240906
  Transmission Date: 20241017
  Serious: No
  Sender: DOMPE FARMACEUTICI
  Company Number: US-FARMAPROD-202308-202309-2654

PATIENT
  Sex: Male

DRUGS (11)
  1. OXERVATE [Suspect]
     Active Substance: CENEGERMIN-BKBJ
     Indication: Neurotrophic keratopathy
     Route: 047
     Dates: start: 20230728
  2. COENZYME Q-10 [Concomitant]
     Dosage: 100 MG-5
  3. MENAQUINONE 6 [Concomitant]
     Active Substance: MENAQUINONE 6
  4. OMEGA-3 ACIDS [Concomitant]
     Active Substance: OMEGA-3 FATTY ACIDS
  5. ALPHA LIPOIC ACID [Concomitant]
     Active Substance: .ALPHA.-LIPOIC ACID
  6. PROBIOTICS NOS [Concomitant]
     Active Substance: PROBIOTICS NOS
     Dosage: 100 BILLION CELL
  7. VITAMIN B COMPLEX [Concomitant]
     Active Substance: CYANOCOBALAMIN\DEXPANTHENOL\NIACINAMIDE\PYRIDOXINE HYDROCHLORIDE\RIBOFLAVIN 5^-PHOSPHATE SODIUM\THIA
  8. VITAMINS [Concomitant]
     Active Substance: VITAMINS
  9. DUPIXENT [Concomitant]
     Active Substance: DUPILUMAB
     Dosage: 300 MG/ 2 ML PEN INJECTOR
  10. FOCUS FACTOR [Concomitant]
  11. GLYCINE [Concomitant]
     Active Substance: GLYCINE

REACTIONS (1)
  - Drug ineffective [Unknown]
